FAERS Safety Report 6725536-X (Version None)
Quarter: 2010Q2

REPORT INFORMATION
  Report Type: 
  Country: None (occurrence: None)
  Receive Date: 20100514
  Receipt Date: 20100513
  Transmission Date: 20101027
  Serious: Yes (Hospitalization, Disabling)
  Sender: FDA-Public Use
  Company Number: US-ROCHE-419592

PATIENT
  Sex: Female
  Weight: 61.2 kg

DRUGS (2)
  1. ACCUTANE [Suspect]
     Route: 048
     Dates: start: 19970922, end: 19971101
  2. ORTHO TRI-CYCLEN [Concomitant]
     Route: 048

REACTIONS (39)
  - ALCOHOL USE [None]
  - ALLERGIC COUGH [None]
  - ALLERGY TO ARTHROPOD STING [None]
  - ANHEDONIA [None]
  - ANXIETY [None]
  - ASTHMA [None]
  - BACK PAIN [None]
  - COLITIS [None]
  - COLITIS ULCERATIVE [None]
  - CONDITION AGGRAVATED [None]
  - DEFORMITY [None]
  - DERMAL CYST [None]
  - DIVERTICULITIS [None]
  - ECONOMIC PROBLEM [None]
  - ECZEMA [None]
  - EXOSTOSIS [None]
  - FUNGAL INFECTION [None]
  - GASTROINTESTINAL DISORDER [None]
  - GASTROOESOPHAGEAL REFLUX DISEASE [None]
  - HAEMORRHOIDAL HAEMORRHAGE [None]
  - IMPAIRED WORK ABILITY [None]
  - INFLAMMATORY BOWEL DISEASE [None]
  - INTESTINAL HAEMORRHAGE [None]
  - MULTIPLE INJURIES [None]
  - NAUSEA [None]
  - OTITIS MEDIA [None]
  - PAIN [None]
  - POLYP [None]
  - PYREXIA [None]
  - RESPIRATORY DISORDER [None]
  - SCOLIOSIS [None]
  - SELF-MEDICATION [None]
  - SKIN PAPILLOMA [None]
  - STRESS AT WORK [None]
  - TREATMENT NONCOMPLIANCE [None]
  - UNEVALUABLE EVENT [None]
  - UPPER RESPIRATORY TRACT INFECTION [None]
  - URTICARIA [None]
  - VOMITING [None]
